FAERS Safety Report 6822274-X (Version None)
Quarter: 2010Q3

REPORT INFORMATION
  Report Type: 
  Country: None (occurrence: None)
  Receive Date: 20100708
  Receipt Date: 20100625
  Transmission Date: 20110219
  Serious: Yes (Other)
  Sender: FDA-Public Use
  Company Number: US-ELI_LILLY_AND_COMPANY-US201003005157

PATIENT
  Sex: Female
  Weight: 79.819 kg

DRUGS (11)
  1. FORTEO [Suspect]
     Indication: OSTEOPOROSIS
     Dosage: 20 UG, DAILY (1/D)
     Route: 065
     Dates: start: 20100108, end: 20100119
  2. FORTEO [Suspect]
     Dosage: 20 UG, DAILY (1/D)
     Dates: start: 20100416
  3. NEXIUM [Concomitant]
  4. SYNTHROID [Concomitant]
  5. ARAVA [Concomitant]
     Dosage: 10 MG, DAILY (1/D)
  6. PREDNISONE [Concomitant]
     Dosage: 3 MG, DAILY (1/D)
  7. CELEBREX [Concomitant]
  8. ZOCOR [Concomitant]
  9. VICODIN [Concomitant]
  10. VITAMIN D [Concomitant]
     Dosage: 2200 U, UNK
  11. CALCIUM                                 /N/A/ [Concomitant]
     Dosage: 1200 MG, DAILY (1/D)

REACTIONS (8)
  - ABDOMINAL PAIN UPPER [None]
  - BURNING SENSATION [None]
  - DIARRHOEA [None]
  - INTERVERTEBRAL DISC DEGENERATION [None]
  - INTERVERTEBRAL DISC PROTRUSION [None]
  - MALAISE [None]
  - NAUSEA [None]
  - WEIGHT DECREASED [None]
